FAERS Safety Report 8285667-2 (Version None)
Quarter: 2012Q2

REPORT INFORMATION
  Report Type: 
  Country: None (occurrence: None)
  Receive Date: 20120413
  Receipt Date: 20120404
  Transmission Date: 20120825
  Serious: Yes (Hospitalization)
  Sender: FDA-Public Use
  Company Number: DE-TEVA-329697GER

PATIENT
  Sex: Female
  Weight: 79 kg

DRUGS (6)
  1. HERCEPTIN [Suspect]
     Indication: BREAST CANCER
     Route: 042
     Dates: start: 20111110
  2. PACLITAXEL [Suspect]
     Indication: BREAST CANCER
     Route: 042
     Dates: start: 20111110
  3. IMODIUM [Concomitant]
     Dates: start: 20111201
  4. LAPATINIB [Suspect]
     Indication: BREAST CANCER
     Dosage: 750 MILLIGRAM;
     Route: 048
     Dates: start: 20111110
  5. DOXORUBICIN HCL [Suspect]
     Indication: BREAST CANCER
     Route: 042
     Dates: start: 20111110
  6. CARBOPLATIN [Suspect]
     Indication: BREAST CANCER
     Route: 042
     Dates: start: 20111110

REACTIONS (3)
  - DIARRHOEA [None]
  - SKIN TOXICITY [None]
  - UPPER RESPIRATORY TRACT INFECTION [None]
